FAERS Safety Report 23183698 (Version 1)
Quarter: 2023Q4

REPORT INFORMATION
  Report Type: Spontaneous
  Country: None (occurrence: CN)
  Receive Date: 20231114
  Receipt Date: 20231114
  Transmission Date: 20240110
  Serious: Yes (Hospitalization)
  Sender: FDA-Public Use
  Company Number: CN-B.Braun Medical Inc.-2148257

PATIENT
  Age: 38 Year
  Sex: Female
  Weight: 75 kg

DRUGS (1)
  1. NUTRILIPID I.V. FAT EMULSION [Suspect]
     Active Substance: SOYBEAN OIL
     Indication: Nutritional supplementation
     Route: 042

REACTIONS (3)
  - Nausea [None]
  - Vomiting [None]
  - Oedema [None]
